FAERS Safety Report 6083601-7 (Version None)
Quarter: 2009Q1

REPORT INFORMATION
  Report Type: 
  Country: None (occurrence: None)
  Receive Date: 20090219
  Receipt Date: 20090216
  Transmission Date: 20090719
  Serious: Yes (Other)
  Sender: FDA-Public Use
  Company Number: IN-BRISTOL-MYERS SQUIBB COMPANY-14509111

PATIENT
  Age: 57 Year
  Sex: Female
  Weight: 60 kg

DRUGS (3)
  1. ORENCIA [Suspect]
     Indication: RHEUMATOID ARTHRITIS
     Dosage: 2ND DOSE ON 12-FEB-2009
     Route: 042
     Dates: start: 20090210, end: 20090213
  2. AMIKACIN [Concomitant]
     Dosage: ALSO GIVEN IN INJECTABLE FORM
     Route: 048
  3. CEFTRIAXONE [Concomitant]
     Dosage: ALSO GIVEN IN INJECTABLE FORM
     Route: 048

REACTIONS (2)
  - INFECTION [None]
  - WHITE BLOOD CELL COUNT INCREASED [None]
